FAERS Safety Report 11092449 (Version 1)
Quarter: 2015Q2

REPORT INFORMATION
  Report Type: Spontaneous
  Country: KR (occurrence: None)
  Receive Date: 20150504
  Receipt Date: 20150504
  Transmission Date: 20150821
  Serious: Yes (Death, Other)
  Sender: FDA-Public Use
  Company Number: KR-ACS-000080

PATIENT
  Age: 78 Year
  Sex: Male

DRUGS (4)
  1. COLISTIN METHANESULFONATE [Suspect]
     Active Substance: COLISTIN SULFATE
     Indication: PNEUMONIA
     Dosage: 2 X 75 MG EVERY 2 DAYSS RESPIRATORY
     Route: 055
  2. IMIPENIEM\CILASTATIN [Suspect]
     Active Substance: CILASTATIN SODIUM\IMIPENEM
     Indication: PNEUMONIA
  3. RIFAMPICIN [Concomitant]
     Active Substance: RIFAMPIN
  4. TRIMETHOPRIM-SULFAMETHOXAZOLE [Concomitant]
     Active Substance: SULFAMETHOXAZOLE\TRIMETHOPRIM

REACTIONS (3)
  - Sepsis [None]
  - Clostridium difficile colitis [None]
  - No therapeutic response [None]
